FAERS Safety Report 5354848-X (Version None)
Quarter: 2007Q2

REPORT INFORMATION
  Report Type: 
  Country: None (occurrence: None)
  Receive Date: 20070612
  Receipt Date: 20070605
  Transmission Date: 20071010
  Serious: Yes (Hospitalization)
  Sender: FDA-Public Use
  Company Number: IT-PFIZER INC-2007037381

PATIENT
  Sex: Female

DRUGS (4)
  1. MAXAQUIN [Suspect]
     Indication: HYPERPYREXIA
     Dosage: DAILY DOSE:400MG
     Route: 048
     Dates: start: 20070328, end: 20070406
  2. ARCOXIA [Suspect]
     Indication: ARTHRALGIA
     Dosage: TEXT:1 TAB AS NEEDED
     Route: 048
  3. LOBIVON [Concomitant]
  4. VITAMIN D3 [Concomitant]
     Dates: start: 20050101

REACTIONS (1)
  - JAUNDICE CHOLESTATIC [None]
